FAERS Safety Report 9730166 (Version 1)
Quarter: 2013Q4

REPORT INFORMATION
  Report Type: Report from Study
  Country: CZ (occurrence: CZ)
  Receive Date: 20131204
  Receipt Date: 20131204
  Transmission Date: 20140711
  Serious: Yes (Hospitalization)
  Sender: FDA-Public Use
  Company Number: CZ-TEVA-448107ISR

PATIENT
  Age: 67 Year
  Sex: Female
  Weight: 72 kg

DRUGS (14)
  1. OXALIPLATIN [Suspect]
     Indication: COLON CANCER METASTATIC
     Dosage: 65 MG/M2 DAILY;
     Route: 042
     Dates: start: 20121120, end: 20121218
  2. OXALIPLATIN [Suspect]
     Dosage: 85 MG/M2 DAILY;
     Route: 042
     Dates: start: 20120925, end: 20121023
  3. LEUCOVORIN CALCIUM [Suspect]
     Indication: COLON CANCER METASTATIC
     Dosage: 400 MG/M2 DAILY;
     Route: 042
     Dates: start: 20120925, end: 20121023
  4. 5(FU) FLUOROURACIL [Suspect]
     Indication: COLON CANCER METASTATIC
     Dosage: 320 MG/M2 DAILY;
     Route: 040
     Dates: start: 20121120, end: 20121218
  5. 5(FU) FLUOROURACIL [Suspect]
     Dosage: 400 MG/M2 DAILY;
     Route: 040
     Dates: start: 20120925, end: 20121023
  6. 5(FU) FLUOROURACIL [Suspect]
     Dosage: 2400 MG/M2 DAILY;
     Route: 042
     Dates: start: 20120925, end: 20121023
  7. 5(FU) FLUOROURACIL [Suspect]
     Dosage: 1920 MG/M2 DAILY;
     Route: 042
     Dates: start: 20121120, end: 20121220
  8. TIVOZANIB [Suspect]
     Indication: COLON CANCER METASTATIC
     Dosage: FOR 21 DAYS. 7 DAYS OIL
     Route: 048
     Dates: start: 20120925, end: 20121228
  9. NOVALGIN [Concomitant]
     Dates: start: 20120918
  10. BISOCARD [Concomitant]
     Dates: start: 20121009
  11. DEGAN [Concomitant]
     Dates: start: 20120925
  12. CARDILOPIN [Concomitant]
     Dates: start: 20121106
  13. TRALGIT [Concomitant]
     Dates: start: 20121113
  14. ZOLPRINOX [Concomitant]
     Dates: start: 20121009

REACTIONS (1)
  - Colitis [Recovered/Resolved]
